FAERS Safety Report 19405857 (Version 1)
Quarter: 2021Q2

REPORT INFORMATION
  Report Type: Spontaneous
  Country: SI (occurrence: SI)
  Receive Date: 20210611
  Receipt Date: 20210611
  Transmission Date: 20210717
  Serious: Yes (Other)
  Sender: FDA-Public Use
  Company Number: NVSC2021SI127544

PATIENT
  Sex: Female
  Weight: 49 kg

DRUGS (6)
  1. LEVETIRACETAM. [Suspect]
     Active Substance: LEVETIRACETAM
     Indication: FOETAL EXPOSURE DURING PREGNANCY
     Dosage: 1000 MG, QD (MOTHERS DOSE)
     Route: 064
  2. KAPECITABIN TEVA [Suspect]
     Active Substance: CAPECITABINE
     Indication: FOETAL EXPOSURE DURING PREGNANCY
     Dosage: 3000 MG, QD (1500 MG/12 HOURS)(MOTHERS DOSE)
     Route: 064
  3. SERTRALINE [Suspect]
     Active Substance: SERTRALINE HYDROCHLORIDE
     Indication: FOETAL EXPOSURE DURING PREGNANCY
     Dosage: 50 MG, QD (MOTHERS DOSE)
     Route: 064
  4. DEXAMETHASONE. [Suspect]
     Active Substance: DEXAMETHASONE
     Indication: FOETAL EXPOSURE DURING PREGNANCY
     Dosage: 8 MG, QD (MOTHERS DOSE)
     Route: 064
  5. PANTOPRAZOLE [Suspect]
     Active Substance: PANTOPRAZOLE
     Indication: FOETAL EXPOSURE DURING PREGNANCY
     Dosage: 40 MG, QD (MOTHERS DOSE)
     Route: 064
  6. KAPECITABIN TEVA [Suspect]
     Active Substance: CAPECITABINE
     Dosage: UNK
     Route: 065

REACTIONS (3)
  - Foetal exposure during pregnancy [Unknown]
  - Premature baby [Unknown]
  - Foetal growth restriction [Unknown]

NARRATIVE: CASE EVENT DATE: 20201115
